FAERS Safety Report 24981801 (Version 1)
Quarter: 2025Q1

REPORT INFORMATION
  Report Type: Spontaneous
  Country: US (occurrence: None)
  Receive Date: 20250218
  Receipt Date: 20250218
  Transmission Date: 20250409
  Serious: Yes (Life-Threatening, Hospitalization)
  Sender: FDA-CTU
  Company Number: None

PATIENT
  Age: 75 Year
  Sex: Female
  Weight: 60.3 kg

DRUGS (12)
  1. LECANEMAB [Suspect]
     Active Substance: LECANEMAB
     Indication: Dementia Alzheimer^s type
     Dosage: FREQUENCY : EVERY OTHER WEEK;?
     Route: 042
     Dates: start: 20250106, end: 20250203
  2. ACETAMINOPHEN [Concomitant]
     Active Substance: ACETAMINOPHEN
  3. BIOTIN [Concomitant]
     Active Substance: BIOTIN
  4. CHOLECALCIFEROL [Concomitant]
     Active Substance: CHOLECALCIFEROL
  5. DONEPEZIL [Concomitant]
     Active Substance: DONEPEZIL
  6. LEVOTHYROXINE [Concomitant]
     Active Substance: LEVOTHYROXINE
  7. MELATONIN [Concomitant]
     Active Substance: MELATONIN
  8. METOPROLOL SUCCINATE [Concomitant]
     Active Substance: METOPROLOL SUCCINATE
  9. VITAMINS [Concomitant]
     Active Substance: VITAMINS
  10. OMEPRAZOLE [Concomitant]
     Active Substance: OMEPRAZOLE
  11. SENNOSIDES [Concomitant]
     Active Substance: SENNOSIDES
  12. SUMATRIPTAN [Concomitant]
     Active Substance: SUMATRIPTAN

REACTIONS (21)
  - Hypoaesthesia [None]
  - Paraesthesia [None]
  - Memory impairment [None]
  - Confusional state [None]
  - Malaise [None]
  - Irritability [None]
  - Somnolence [None]
  - Nausea [None]
  - Decreased appetite [None]
  - Headache [None]
  - Muscle twitching [None]
  - Dyskinesia [None]
  - Generalised tonic-clonic seizure [None]
  - Muscle twitching [None]
  - Cerebral amyloid angiopathy [None]
  - Brain oedema [None]
  - Amyloid related imaging abnormality-microhaemorrhages and haemosiderin deposits [None]
  - Cerebral mass effect [None]
  - Hemiparesis [None]
  - Facial paralysis [None]
  - Dizziness [None]

NARRATIVE: CASE EVENT DATE: 20250212
